FAERS Safety Report 15069392 (Version 1)
Quarter: 2018Q2

REPORT INFORMATION
  Report Type: Spontaneous
  Country: CA (occurrence: CA)
  Receive Date: 20180626
  Receipt Date: 20180626
  Transmission Date: 20180711
  Serious: Yes (Hospitalization)
  Sender: FDA-Public Use
  Company Number: CA-ACTELION-A-NJ2018-174138

PATIENT
  Age: 81 Year
  Sex: Female
  Weight: 61.22 kg

DRUGS (7)
  1. BREO ELLIPTA [Concomitant]
     Active Substance: FLUTICASONE FUROATE\VILANTEROL TRIFENATATE
  2. ACTONEL [Concomitant]
     Active Substance: RISEDRONATE SODIUM
  3. TUDORZA GENUAIR [Concomitant]
     Active Substance: ACLIDINIUM BROMIDE
  4. OPSUMIT [Suspect]
     Active Substance: MACITENTAN
     Indication: PULMONARY ARTERIAL HYPERTENSION
     Dosage: 10 MG, QD
     Route: 048
     Dates: start: 20171103
  5. VITAMIN B [Concomitant]
     Active Substance: VITAMIN B
  6. LISINOPRIL. [Concomitant]
     Active Substance: LISINOPRIL
  7. ADCIRCA [Concomitant]
     Active Substance: TADALAFIL

REACTIONS (1)
  - Hospitalisation [Not Recovered/Not Resolved]
